FAERS Safety Report 7173492-5 (Version None)
Quarter: 2010Q4

REPORT INFORMATION
  Report Type: 
  Country: None (occurrence: None)
  Receive Date: 20101219
  Receipt Date: 20100302
  Transmission Date: 20110411
  Serious: No
  Sender: FDA-Public Use
  Company Number: US-AMGEN-KDL396326

PATIENT

DRUGS (8)
  1. ENBREL [Suspect]
     Indication: PRODUCT USED FOR UNKNOWN INDICATION
     Dosage: 50 MG, 2 TIMES/WK
     Route: 058
  2. DULOXETIME HYDROCHLORIDE [Concomitant]
     Dosage: 20 MG, UNK
  3. PREGABALIN [Concomitant]
     Dosage: 100 MG, UNK
  4. TRAZODONE HCL [Concomitant]
     Dosage: 50 MG, UNK
  5. TIZANIDINE [Concomitant]
     Dosage: 2 MG, UNK
  6. ACYCLOVIR [Concomitant]
     Dosage: 200 MG, UNK
  7. DIAZEPAM [Concomitant]
     Dosage: 2 MG, UNK
  8. UNSPECIFIED MEDICATION [Concomitant]
     Dosage: 325 MG, UNK

REACTIONS (3)
  - INJECTION SITE HAEMATOMA [None]
  - INJECTION SITE REACTION [None]
  - INJECTION SITE URTICARIA [None]
